FAERS Safety Report 5468857-3 (Version None)
Quarter: 2007Q3

REPORT INFORMATION
  Report Type: 
  Country: None (occurrence: None)
  Receive Date: 20070926
  Receipt Date: 20070914
  Transmission Date: 20080115
  Serious: Yes (Hospitalization)
  Sender: FDA-Public Use
  Company Number: BR-PFIZER INC-2007078192

PATIENT
  Sex: Female

DRUGS (3)
  1. EXUBERA [Suspect]
     Indication: DIABETES MELLITUS
     Route: 055
     Dates: start: 20070712, end: 20070815
  2. ALL OTHER THERAPEUTIC PRODUCTS [Concomitant]
  3. NOVOMIX [Concomitant]

REACTIONS (5)
  - DYSPNOEA [None]
  - ERYTHEMA [None]
  - HEADACHE [None]
  - SWELLING [None]
  - TACHYCARDIA [None]
